FAERS Safety Report 4750660-0 (Version None)
Quarter: 2005Q3

REPORT INFORMATION
  Report Type: 
  Country: None (occurrence: None)
  Receive Date: 20050823
  Receipt Date: 20050816
  Transmission Date: 20060218
  Serious: Yes (Other)
  Sender: FDA-Public Use
  Company Number: PHEH2005US09164

PATIENT
  Age: 60 Year
  Sex: Female

DRUGS (1)
  1. ZELNORM [Suspect]
     Indication: IRRITABLE BOWEL SYNDROME
     Dosage: 6 MG BID, ^ON AND OFF^
     Route: 048
     Dates: start: 20050201, end: 20050816

REACTIONS (1)
  - RECTAL HAEMORRHAGE [None]
